FAERS Safety Report 9879104 (Version 2)
Quarter: 2014Q1

REPORT INFORMATION
  Report Type: Spontaneous
  Country: US (occurrence: US)
  Receive Date: 20140206
  Receipt Date: 20140206
  Transmission Date: 20141002
  Serious: No
  Sender: FDA-Public Use
  Company Number: US-ALLERGAN-1313186US

PATIENT
  Sex: Female

DRUGS (5)
  1. BOTOX COSMETIC [Suspect]
     Indication: SKIN WRINKLING
     Dosage: 10 UNITS, SINGLE
     Route: 030
     Dates: start: 20130820, end: 20130820
  2. BOTOX COSMETIC [Suspect]
     Indication: FACE LIFT
     Dosage: 70 UNITS, SINGLE
     Route: 030
     Dates: start: 20130806, end: 20130806
  3. BOTOX COSMETIC [Suspect]
     Indication: SKIN WRINKLING
     Dosage: 20 UNITS, SINGLE
     Route: 030
     Dates: start: 20130709, end: 20130709
  4. BOTOX COSMETIC [Suspect]
     Dosage: 10 UNITS, SINGLE
     Route: 030
     Dates: start: 20130619, end: 20130619
  5. BOTOX COSMETIC [Suspect]
     Dosage: 45.5 UNITS, SINGLE
     Route: 030
     Dates: start: 20130607, end: 20130607

REACTIONS (2)
  - Off label use [Unknown]
  - Drug ineffective [Unknown]
